FAERS Safety Report 8530673-3 (Version None)
Quarter: 2012Q3

REPORT INFORMATION
  Report Type: 
  Country: None (occurrence: None)
  Receive Date: 20120723
  Receipt Date: 20120628
  Transmission Date: 20120928
  Serious: No
  Sender: FDA-Public Use
  Company Number: US-TEVA-345638USA

PATIENT
  Sex: Female

DRUGS (2)
  1. TRIAMCINOLONE [Suspect]
     Dates: start: 20120101
  2. OMNARIS [Suspect]
     Dates: start: 20110601, end: 20120101

REACTIONS (1)
  - SINUSITIS [None]
